FAERS Safety Report 6354287-9 (Version None)
Quarter: 2009Q3

REPORT INFORMATION
  Report Type: 
  Country: None (occurrence: None)
  Receive Date: 20090914
  Receipt Date: 20090903
  Transmission Date: 20100115
  Serious: Yes (Hospitalization, Other)
  Sender: FDA-Public Use
  Company Number: PHHY2009US37454

PATIENT
  Age: 3 Year
  Sex: Male

DRUGS (9)
  1. CYCLOSPORINE [Suspect]
     Indication: STEM CELL TRANSPLANT
     Dosage: UNK
  2. METHYLPREDNISOLONE [Suspect]
     Indication: STEM CELL TRANSPLANT
     Dosage: UNK
  3. BUSULFAN [Concomitant]
     Indication: STEM CELL TRANSPLANT
     Dosage: 16 MG/KG
     Route: 048
  4. CYCLOPHOSPHAMIDE [Concomitant]
     Indication: STEM CELL TRANSPLANT
     Dosage: 200 MG/KG
  5. ANTILYMPHOCYTE IMMUNOGLOBULIN (HORSE) [Concomitant]
     Indication: STEM CELL TRANSPLANT
     Dosage: 120 MG/KG
  6. LEVETIRACETAM [Concomitant]
     Dosage: UNK
  7. LORAZEPAM [Concomitant]
     Indication: CONVULSION
  8. NEUPOGEN [Concomitant]
  9. BLOOD AND RELATED PRODUCTS [Concomitant]

REACTIONS (6)
  - ACUTE GRAFT VERSUS HOST DISEASE IN INTESTINE [None]
  - CATHETER REMOVAL [None]
  - CYTOMEGALOVIRUS VIRAEMIA [None]
  - DIARRHOEA [None]
  - HYPERTENSION [None]
  - VENOUS THROMBOSIS [None]
